FAERS Safety Report 7689945-7 (Version None)
Quarter: 2011Q3

REPORT INFORMATION
  Report Type: 
  Country: None (occurrence: None)
  Receive Date: 20110818
  Receipt Date: 20110809
  Transmission Date: 20111222
  Serious: No
  Sender: FDA-Public Use
  Company Number: US-BIOGENIDEC-2011BI030358

PATIENT
  Age: 54 Year
  Sex: Female

DRUGS (1)
  1. TYSABRI [Suspect]
     Indication: MULTIPLE SCLEROSIS
     Route: 042
     Dates: start: 20080730, end: 20110616

REACTIONS (5)
  - HERPES ZOSTER [None]
  - FALL [None]
  - DRUG INEFFECTIVE [None]
  - ACNE [None]
  - ASTHENIA [None]
